FAERS Safety Report 7899742-5 (Version None)
Quarter: 2011Q4

REPORT INFORMATION
  Report Type: 
  Country: None (occurrence: None)
  Receive Date: 20111107
  Receipt Date: 20110919
  Transmission Date: 20120403
  Serious: No
  Sender: FDA-Public Use
  Company Number: US-AMGEN-USASP2011048560

PATIENT
  Age: 47 Year
  Sex: Female
  Weight: 72.562 kg

DRUGS (1)
  1. ENBREL [Suspect]
     Indication: RHEUMATOID ARTHRITIS
     Dosage: 50 MG, QWK
     Dates: start: 19970101

REACTIONS (3)
  - SKIN ULCER [None]
  - PRURITUS [None]
  - ARTHROPOD BITE [None]
